FAERS Safety Report 14145709 (Version 2)
Quarter: 2017Q4

REPORT INFORMATION
  Report Type: Spontaneous
  Country: NL (occurrence: NL)
  Receive Date: 20171031
  Receipt Date: 20171106
  Transmission Date: 20180321
  Serious: Yes (Hospitalization)
  Sender: FDA-Public Use
  Company Number: NL-009507513-1710NLD014256

PATIENT
  Age: 26 Year
  Sex: Male

DRUGS (1)
  1. MIRTAZAPINE ORODISPERGEERBARE TABLETTEN [Suspect]
     Active Substance: MIRTAZAPINE
     Indication: DEPRESSION
     Dosage: 1 DD 1; (15MG, QD)
     Route: 048
     Dates: start: 20170927, end: 20171012

REACTIONS (2)
  - Hallucination [Recovered/Resolved]
  - Psychotic disorder [Recovered/Resolved]

NARRATIVE: CASE EVENT DATE: 20171004
